FAERS Safety Report 6532687-1 (Version None)
Quarter: 2010Q1

REPORT INFORMATION
  Report Type: 
  Country: None (occurrence: None)
  Receive Date: 20100111
  Receipt Date: 20100104
  Transmission Date: 20100710
  Serious: Yes (Other)
  Sender: FDA-Public Use
  Company Number: US-BAYER-200937381NA

PATIENT
  Age: 41 Year
  Sex: Female
  Weight: 64 kg

DRUGS (2)
  1. MIRENA [Suspect]
     Indication: CONTRACEPTION
     Dosage: CONTINUOUS
     Route: 015
     Dates: start: 20091026, end: 20091026
  2. VITAMIN TAB [Concomitant]

REACTIONS (1)
  - DEVICE DISLOCATION [None]
